FAERS Safety Report 7026617-6 (Version None)
Quarter: 2010Q4

REPORT INFORMATION
  Report Type: 
  Country: None (occurrence: None)
  Receive Date: 20101004
  Receipt Date: 20100927
  Transmission Date: 20110411
  Serious: Yes (Other)
  Sender: FDA-Public Use
  Company Number: BE-SANOFI-AVENTIS-2010SA049549

PATIENT
  Age: 82 Year
  Sex: Male
  Weight: 88 kg

DRUGS (2)
  1. DRONEDARONE HCL [Suspect]
     Route: 048
     Dates: start: 20100301, end: 20100801
  2. OLMESARTAN MEDOXOMIL [Concomitant]
     Indication: PRODUCT USED FOR UNKNOWN INDICATION
     Route: 048
     Dates: start: 20090101

REACTIONS (1)
  - HEPATIC ENZYME INCREASED [None]
